FAERS Safety Report 12563023 (Version 1)
Quarter: 2016Q3

REPORT INFORMATION
  Report Type: Spontaneous
  Country: DE (occurrence: DE)
  Receive Date: 20160715
  Receipt Date: 20160715
  Transmission Date: 20161109
  Serious: Yes (Hospitalization)
  Sender: FDA-Public Use
  Company Number: DE-ELI_LILLY_AND_COMPANY-DE201607002488

PATIENT
  Age: 62 Year
  Sex: Male

DRUGS (27)
  1. RISPERDAL [Interacting]
     Active Substance: RISPERIDONE
     Indication: PRODUCT USED FOR UNKNOWN INDICATION
     Dosage: 1 MG, UNKNOWN
     Route: 065
     Dates: start: 20150204
  2. STANGYL                            /00051802/ [Interacting]
     Active Substance: TRIMIPRAMINE MALEATE
     Dosage: 150 MG, UNKNOWN
     Route: 065
     Dates: start: 20150218, end: 20150222
  3. SERTRALIN STADA [Interacting]
     Active Substance: SERTRALINE HYDROCHLORIDE
     Dosage: 125 MG, UNKNOWN
     Route: 065
     Dates: start: 20150219, end: 20150301
  4. SERTRALIN STADA [Interacting]
     Active Substance: SERTRALINE HYDROCHLORIDE
     Dosage: 100 MG, UNKNOWN
     Route: 065
     Dates: start: 20150317, end: 20150408
  5. ZYPREXA [Interacting]
     Active Substance: OLANZAPINE
     Dosage: 10MG, UNKNOWN
     Route: 065
     Dates: start: 20150202, end: 20150222
  6. RISPERDAL [Interacting]
     Active Substance: RISPERIDONE
     Dosage: 2 MG, UNKNOWN
     Route: 065
     Dates: start: 20150305, end: 20150306
  7. SERTRALIN STADA [Interacting]
     Active Substance: SERTRALINE HYDROCHLORIDE
     Dosage: 150 MG, UNKNOWN
     Route: 065
     Dates: start: 20150302, end: 20150316
  8. OXYCODON [Concomitant]
     Active Substance: OXYCODONE
     Dosage: 240 MG, UNKNOWN
     Route: 065
     Dates: end: 20150128
  9. FLUANXOL                           /00109702/ [Interacting]
     Active Substance: FLUPENTIXOL
     Dosage: 10 MG, UNKNOWN
     Route: 065
     Dates: start: 20150305, end: 20150307
  10. STANGYL /00051802/ [Interacting]
     Active Substance: TRIMIPRAMINE MALEATE
     Indication: PRODUCT USED FOR UNKNOWN INDICATION
     Dosage: 300 MG, UNKNOWN
     Route: 065
     Dates: end: 20150212
  11. ZYPREXA [Interacting]
     Active Substance: OLANZAPINE
     Dosage: 20 MG, UNKNOWN
     Route: 065
     Dates: start: 20150223, end: 20150224
  12. RISPERDAL [Interacting]
     Active Substance: RISPERIDONE
     Dosage: 2 MG, UNKNOWN
     Route: 065
     Dates: start: 20150307, end: 20150401
  13. STANGYL                            /00051802/ [Interacting]
     Active Substance: TRIMIPRAMINE MALEATE
     Dosage: 250 MG, UNKNOWN
     Route: 065
     Dates: start: 20150213, end: 20150216
  14. STANGYL                            /00051802/ [Interacting]
     Active Substance: TRIMIPRAMINE MALEATE
     Dosage: 100 MG, UNKNOWN
     Route: 065
     Dates: start: 20150223, end: 20150326
  15. ZYPREXA [Interacting]
     Active Substance: OLANZAPINE
     Dosage: 25 MG, UNKNOWN
     Route: 065
     Dates: start: 20150225
  16. RISPERDAL [Interacting]
     Active Substance: RISPERIDONE
     Dosage: 3 MG, UNKNOWN
     Route: 065
     Dates: start: 20150307, end: 20150312
  17. LYRICA [Concomitant]
     Active Substance: PREGABALIN
     Dosage: 225 MG, UNKNOWN
     Route: 065
  18. ZYPREXA [Interacting]
     Active Substance: OLANZAPINE
     Dosage: 7.5 MG, UNKNOWN
     Route: 065
     Dates: start: 20150130, end: 20150201
  19. FLUANXOL                           /00109702/ [Interacting]
     Active Substance: FLUPENTIXOL
     Dosage: 7 MG, UNKNOWN
     Route: 065
     Dates: start: 20150308, end: 20150310
  20. FLUANXOL                           /00109702/ [Interacting]
     Active Substance: FLUPENTIXOL
     Dosage: 5 MG, UNKNOWN
     Route: 065
     Dates: start: 20150311
  21. STANGYL                            /00051802/ [Interacting]
     Active Substance: TRIMIPRAMINE MALEATE
     Dosage: 200 MG, UNKNOWN
     Route: 065
     Dates: start: 20150217
  22. FLUANXOL                           /00109702/ [Interacting]
     Active Substance: FLUPENTIXOL
     Indication: PRODUCT USED FOR UNKNOWN INDICATION
     Dosage: 15 MG, UNKNOWN
     Route: 065
     Dates: start: 20131120
  23. ZYPREXA [Suspect]
     Active Substance: OLANZAPINE
     Indication: PRODUCT USED FOR UNKNOWN INDICATION
     Dosage: 5 MG, UNKNOWN
     Route: 065
     Dates: start: 20150127, end: 20150129
  24. ZYPREXA [Interacting]
     Active Substance: OLANZAPINE
     Dosage: 15MG, UNKNOWN
     Route: 065
     Dates: start: 20150202, end: 20150222
  25. SERTRALIN STADA [Interacting]
     Active Substance: SERTRALINE HYDROCHLORIDE
     Indication: PRODUCT USED FOR UNKNOWN INDICATION
     Dosage: 25MG, UNKNOWN
     Route: 065
     Dates: start: 20150213, end: 20150217
  26. SERTRALIN STADA [Interacting]
     Active Substance: SERTRALINE HYDROCHLORIDE
     Dosage: 100MG, UNKNOWN
     Route: 065
     Dates: start: 20150213, end: 20150217
  27. OXYCODON [Concomitant]
     Active Substance: OXYCODONE
     Dosage: 200 MG, UNKNOWN
     Route: 065
     Dates: start: 20150129

REACTIONS (2)
  - Parkinsonism [Recovered/Resolved]
  - Drug interaction [Recovering/Resolving]

NARRATIVE: CASE EVENT DATE: 20150305
